FAERS Safety Report 24797065 (Version 2)
Quarter: 2025Q1

REPORT INFORMATION
  Report Type: Spontaneous
  Country: US (occurrence: US)
  Receive Date: 20250101
  Receipt Date: 20250221
  Transmission Date: 20250408
  Serious: No
  Sender: BLUEPRINT MEDICINES
  Company Number: US-Blueprint Medicines Corporation-2024-AER-00057

PATIENT
  Age: 39 Year
  Sex: Female

DRUGS (1)
  1. AYVAKIT [Suspect]
     Active Substance: AVAPRITINIB
     Indication: Mastocytoma
     Route: 048
     Dates: start: 20240906

REACTIONS (6)
  - Off label use [Unknown]
  - Arthralgia [Unknown]
  - Musculoskeletal stiffness [Unknown]
  - Eczema [Unknown]
  - Unevaluable event [Unknown]
  - Swelling [Unknown]

NARRATIVE: CASE EVENT DATE: 20240906
